FAERS Safety Report 9674589 (Version 1)
Quarter: 2013Q4

REPORT INFORMATION
  Report Type: Spontaneous
  Country: US (occurrence: None)
  Receive Date: 20131106
  Receipt Date: 20131106
  Transmission Date: 20140711
  Serious: No
  Sender: FDA-Public Use
  Company Number: None

PATIENT
  Age: 79 Year
  Sex: Female
  Weight: 65.77 kg

DRUGS (11)
  1. LIPITOR [Suspect]
     Indication: BLOOD CHOLESTEROL INCREASED
     Route: 048
     Dates: start: 20130724, end: 20131008
  2. WARFARIN [Concomitant]
  3. FUROSEMIDE [Concomitant]
  4. LISINOPRIL [Concomitant]
  5. LEVOTHYROXINE [Concomitant]
  6. DIGOXIN [Concomitant]
  7. SUCRALFATE [Concomitant]
  8. PANTOPRAZOLE [Concomitant]
  9. POTASSIUM [Concomitant]
  10. VIT D3 [Concomitant]
  11. VITAMIN B12 [Concomitant]

REACTIONS (6)
  - Gait disturbance [None]
  - Myalgia [None]
  - Burning sensation [None]
  - Walking aid user [None]
  - Walking aid user [None]
  - Asthenia [None]
